FAERS Safety Report 8011101-3 (Version None)
Quarter: 2011Q4

REPORT INFORMATION
  Report Type: 
  Country: None (occurrence: None)
  Receive Date: 20111228
  Receipt Date: 20111221
  Transmission Date: 20120403
  Serious: Yes (Other)
  Sender: FDA-Public Use
  Company Number: US-ROCHE-GNE307474

PATIENT
  Sex: Female
  Weight: 109.87 kg

DRUGS (14)
  1. OMALIZUMAB [Suspect]
     Indication: ASTHMA
     Dosage: 300 MG, Q2W
     Route: 058
     Dates: start: 20100922
  2. OMEPRAZOLE [Concomitant]
     Indication: IRRITABLE BOWEL SYNDROME
     Dosage: UNK
  3. ADVAIR DISKUS 100/50 [Concomitant]
     Indication: ASTHMA
     Dosage: UNK
  4. ACETAMINOPHEN [Concomitant]
     Indication: HEADACHE
     Dosage: UNK
     Route: 048
  5. CLARITIN [Concomitant]
     Indication: HYPERSENSITIVITY
     Dosage: UNK TABLET, QD
     Route: 048
  6. LEXAPRO [Concomitant]
     Indication: ANXIETY
     Dosage: UNK
  7. PREDNISONE TAB [Concomitant]
     Indication: ASTHMA
  8. MOTRIN [Concomitant]
     Indication: PAIN
     Dosage: UNK TABLET, UNK
     Route: 048
     Dates: start: 20110514
  9. NASACORT [Concomitant]
     Indication: HYPERSENSITIVITY
     Dosage: UNK
  10. CALCIUM CARBONATE [Concomitant]
     Indication: DYSPEPSIA
     Dosage: UNK
  11. PROAIR HFA [Concomitant]
     Indication: ASTHMA
     Dosage: UNK
  12. VITAMIN AND MINERAL PRENATAL SUPPLEMENT W/ FOLIC ACID CAP [Concomitant]
     Indication: PREGNANCY
     Dosage: 1 TABLET, QD, DOSE=1 TABLET, DAILY DOSE=1 TABLET
     Route: 048
  13. SPIRIVA [Concomitant]
     Indication: ASTHMA
     Dosage: UNK
  14. AMOXICILLIN [Concomitant]
     Indication: ASTHMA

REACTIONS (2)
  - MATERNAL EXPOSURE DURING PREGNANCY [None]
  - RETAINED PLACENTA OR MEMBRANES [None]
